FAERS Safety Report 4426392-5 (Version None)
Quarter: 2004Q3

REPORT INFORMATION
  Report Type: 
  Country: None (occurrence: None)
  Receive Date: 20040811
  Receipt Date: 20040730
  Transmission Date: 20050211
  Serious: Yes (Hospitalization)
  Sender: FDA-Public Use
  Company Number: 200407079

PATIENT
  Sex: Female
  Weight: 17.7 kg

DRUGS (2)
  1. BOTOX [Suspect]
     Indication: MUSCLE SPASTICITY
     Dates: end: 20040518
  2. CARBAMAZEPINE [Concomitant]

REACTIONS (1)
  - CONVULSION [None]
